FAERS Safety Report 21244412 (Version 1)
Quarter: 2022Q3

REPORT INFORMATION
  Report Type: Report from Study
  Country: TW (occurrence: TW)
  Receive Date: 20220823
  Receipt Date: 20220823
  Transmission Date: 20221027
  Serious: Yes (Disabling, Other)
  Sender: FDA-Public Use
  Company Number: TW-BRISTOL-MYERS SQUIBB COMPANY-2022-090925

PATIENT
  Age: 70 Year
  Sex: Female

DRUGS (2)
  1. ORENCIA [Suspect]
     Active Substance: ABATACEPT
     Indication: Rheumatoid arthritis
     Dosage: MONTHLY
     Route: 042
     Dates: start: 20121226
  2. METHOTREXATE [Concomitant]
     Active Substance: METHOTREXATE
     Indication: Rheumatoid arthritis
     Dosage: MONTHLY
     Route: 048
     Dates: start: 20121216

REACTIONS (2)
  - Hepatitis B DNA increased [Recovering/Resolving]
  - Benign neoplasm of thymus [Unknown]

NARRATIVE: CASE EVENT DATE: 20220816
